FAERS Safety Report 5157743-4 (Version None)
Quarter: 2006Q4

REPORT INFORMATION
  Report Type: 
  Country: None (occurrence: None)
  Receive Date: 20061127
  Receipt Date: 20061121
  Transmission Date: 20070319
  Serious: Yes (Hospitalization)
  Sender: FDA-Public Use
  Company Number: 2006AP05536

PATIENT
  Age: 77 Year
  Sex: Male

DRUGS (5)
  1. OMEPRAL [Suspect]
     Indication: GASTRIC ULCER
     Route: 048
     Dates: start: 20061110, end: 20061120
  2. PANALDINE [Suspect]
     Route: 048
     Dates: start: 20061110, end: 20061120
  3. DIOVAN [Suspect]
     Route: 048
     Dates: start: 20061110, end: 20061120
  4. EUGLUCON [Suspect]
     Route: 048
     Dates: start: 20061110, end: 20061120
  5. RENIVACE [Suspect]
     Route: 048
     Dates: start: 20061110, end: 20061116

REACTIONS (1)
  - INTERSTITIAL LUNG DISEASE [None]
